FAERS Safety Report 14292980 (Version 2)
Quarter: 2018Q1

REPORT INFORMATION
  Report Type: Other
  Country: US (occurrence: US)
  Receive Date: 20171215
  Receipt Date: 20180108
  Transmission Date: 20180509
  Serious: Yes (Other)
  Sender: FDA-Public Use
  Company Number: US-SIM_00782_2017

PATIENT
  Sex: Female

DRUGS (1)
  1. EAR WAX REMOVAL KIT (HOMEOPATHIC) [Suspect]
     Active Substance: HOMEOPATHICS
     Indication: PRODUCT USED FOR UNKNOWN INDICATION
     Dosage: NI/SINGLE/
     Route: 001
     Dates: start: 20171102, end: 20171103

REACTIONS (3)
  - Drug ineffective [Recovered/Resolved]
  - Ear pain [Recovered/Resolved]
  - Deafness unilateral [Recovered/Resolved]

NARRATIVE: CASE EVENT DATE: 20171103
